FAERS Safety Report 10777083 (Version 3)
Quarter: 2021Q2

REPORT INFORMATION
  Report Type: Spontaneous
  Country: US (occurrence: US)
  Receive Date: 20150209
  Receipt Date: 20210614
  Transmission Date: 20210716
  Serious: No
  Sender: FDA-Public Use
  Company Number: US-PFIZER INC-2015050888

PATIENT
  Sex: Female
  Weight: 61.23 kg

DRUGS (4)
  1. AROMASIN [Suspect]
     Active Substance: EXEMESTANE
     Dosage: 25 MG, 1X/DAY (ONE TABLET ONCE DAILY)
     Route: 048
     Dates: start: 202010
  2. AROMASIN [Suspect]
     Active Substance: EXEMESTANE
     Indication: BREAST CANCER
     Dosage: 25 MG, UNK
     Dates: start: 2011
  3. INSULIN [Concomitant]
     Active Substance: INSULIN NOS
     Dosage: UNK
     Dates: start: 20200722
  4. VITAMIN B [Concomitant]
     Active Substance: VITAMIN B
     Dosage: UNK

REACTIONS (7)
  - Pain in extremity [Unknown]
  - Sexual dysfunction [Unknown]
  - Vitamin D abnormal [Not Recovered/Not Resolved]
  - Blood cholesterol abnormal [Recovering/Resolving]
  - Pain [Not Recovered/Not Resolved]
  - Paraesthesia [Recovered/Resolved]
  - Road traffic accident [Unknown]
